FAERS Safety Report 9972925 (Version 1)
Quarter: 2014Q1

REPORT INFORMATION
  Report Type: Spontaneous
  Country: JP (occurrence: JP)
  Receive Date: 20140306
  Receipt Date: 20140306
  Transmission Date: 20141002
  Serious: Yes (Hospitalization, Other)
  Sender: FDA-Public Use
  Company Number: JP-WATSON-2014-03463

PATIENT
  Age: 71 Year
  Sex: Female

DRUGS (1)
  1. MEXILETINE (WATSON LABORATORIES) [Suspect]
     Indication: ARRHYTHMIA
     Dosage: UNK
     Route: 065

REACTIONS (5)
  - Drug reaction with eosinophilia and systemic symptoms [Unknown]
  - Fulminant type 1 diabetes mellitus [Unknown]
  - Autoimmune thyroiditis [Unknown]
  - Human herpesvirus 6 infection [Unknown]
  - Cytomegalovirus infection [Unknown]
